FAERS Safety Report 4708566-9 (Version None)
Quarter: 2005Q3

REPORT INFORMATION
  Report Type: 
  Country: None (occurrence: None)
  Receive Date: 20050705
  Receipt Date: 20050623
  Transmission Date: 20060218
  Serious: Yes (Other)
  Sender: FDA-Public Use
  Company Number: B0385389A

PATIENT
  Age: 26 Year
  Sex: Female

DRUGS (6)
  1. AUGMENTIN '125' [Suspect]
     Indication: TUBERCULOSIS
  2. PYRAZINAMIDE [Suspect]
  3. CAPREOMYCIN (FORMULATION UNKNOWN) (CAPREOMYCIN) [Suspect]
  4. CIPROFLOXACIN [Suspect]
  5. PROTHIONAMIDE (FORMULATION UNKNOWN) (PROTHIONAMIDE) [Suspect]
  6. CYCLOSERINE [Suspect]

REACTIONS (3)
  - DRUG EXPOSURE DURING PREGNANCY [None]
  - GASTROINTESTINAL DISORDER [None]
  - HYPOKALAEMIA [None]
